FAERS Safety Report 7486615-5 (Version None)
Quarter: 2011Q2

REPORT INFORMATION
  Report Type: 
  Country: None (occurrence: None)
  Receive Date: 20110517
  Receipt Date: 20110513
  Transmission Date: 20111010
  Serious: Yes (Hospitalization, Other)
  Sender: FDA-Public Use
  Company Number: BR-ABBOTT-10P-020-0685947-00

PATIENT
  Sex: Female
  Weight: 51 kg

DRUGS (23)
  1. HUMIRA [Suspect]
     Route: 058
  2. SIMVASTATIN [Concomitant]
     Indication: BLOOD CHOLESTEROL
  3. LEVOID [Concomitant]
     Indication: HYPOTHYROIDISM
     Route: 048
     Dates: start: 20101201
  4. MONOCORDIL [Concomitant]
     Indication: CARDIAC DISORDER
  5. CEDUR [Concomitant]
     Indication: PRODUCT USED FOR UNKNOWN INDICATION
  6. PLAVIX [Concomitant]
     Indication: CARDIOVASCULAR DISORDER
     Route: 048
  7. HUMIRA [Suspect]
     Indication: RHEUMATOID ARTHRITIS
     Route: 058
     Dates: start: 20100601
  8. PANTOPRAZOLE [Concomitant]
     Indication: GASTRIC DISORDER
     Route: 048
  9. CARVEDILOL [Concomitant]
     Indication: CARDIAC DISORDER
  10. INSULIN [Concomitant]
     Indication: DIABETES MELLITUS
  11. ZOCOR [Concomitant]
     Indication: BLOOD CHOLESTEROL ABNORMAL
  12. LEXOTAN [Concomitant]
     Route: 048
  13. ANCORON [Concomitant]
     Indication: CARDIAC DISORDER
  14. LEXOTAN [Concomitant]
     Indication: SLEEP DISORDER THERAPY
  15. BEZAFIBRATE [Concomitant]
     Indication: CARDIOVASCULAR DISORDER
     Route: 048
  16. PANTOCAL [Concomitant]
     Indication: PANCREATIC DISORDER
  17. APRESOLINA [Concomitant]
     Indication: CARDIAC DISORDER
  18. CALCORT [Concomitant]
     Indication: RHEUMATOID ARTHRITIS
  19. PANTOPRAZOLE [Concomitant]
     Indication: PROPHYLAXIS
  20. CARVEDILOL [Concomitant]
     Route: 048
  21. ANCORON [Concomitant]
     Indication: PRODUCT USED FOR UNKNOWN INDICATION
  22. RETIMIU [Concomitant]
     Indication: PRODUCT USED FOR UNKNOWN INDICATION
     Route: 048
  23. SIMVASTATIN [Concomitant]
     Indication: BLOOD TRIGLYCERIDES
     Route: 048

REACTIONS (9)
  - VASCULAR BYPASS DYSFUNCTION [None]
  - PANCREATITIS ACUTE [None]
  - CARDIAC DISORDER [None]
  - VOMITING [None]
  - ARTHRALGIA [None]
  - INSOMNIA [None]
  - CHOLELITHIASIS [None]
  - CATARACT [None]
  - VASCULAR INSUFFICIENCY [None]
